FAERS Safety Report 6469577-9 (Version None)
Quarter: 2009Q4

REPORT INFORMATION
  Report Type: 
  Country: None (occurrence: None)
  Receive Date: 20091203
  Receipt Date: 20091124
  Transmission Date: 20100525
  Serious: Yes (Other)
  Sender: FDA-Public Use
  Company Number: US-TEVA-216031USA

PATIENT
  Sex: Female

DRUGS (1)
  1. CLARAVIS [Suspect]
     Dosage: 20MG + 40MG
     Route: 048
     Dates: start: 20090609, end: 20091118

REACTIONS (1)
  - UNINTENDED PREGNANCY [None]
